FAERS Safety Report 8610866-7 (Version None)
Quarter: 2012Q3

REPORT INFORMATION
  Report Type: 
  Country: None (occurrence: None)
  Receive Date: 20120423
  Receipt Date: 20100722
  Transmission Date: 20120928
  Serious: Yes (Other)
  Sender: FDA-Public Use
  Company Number: PHHY2010US34984

PATIENT
  Age: 53 Year
  Sex: Female
  Weight: 86 kg

DRUGS (5)
  1. SYNTHROID [Concomitant]
  2. METHOTREXAT (METHOTREXATE) [Concomitant]
  3. LITHIUM CARBONATE [Concomitant]
  4. FEMARA [Suspect]
     Dates: start: 20100507, end: 20100525
  5. LISINOPRIL [Concomitant]

REACTIONS (5)
  - ARTHRALGIA [None]
  - ARTHRITIS [None]
  - MYALGIA [None]
  - MUSCLE SWELLING [None]
  - SWELLING [None]
